FAERS Safety Report 18222782 (Version 1)
Quarter: 2020Q3

REPORT INFORMATION
  Report Type: Spontaneous
  Country: US (occurrence: US)
  Receive Date: 20200902
  Receipt Date: 20200902
  Transmission Date: 20201103
  Serious: Yes (Hospitalization)
  Sender: FDA-Public Use
  Company Number: None

PATIENT
  Sex: Female

DRUGS (9)
  1. CRESTOR [Concomitant]
     Active Substance: ROSUVASTATIN CALCIUM
  2. TYLENOL [Concomitant]
     Active Substance: ACETAMINOPHEN
  3. LASIX [Concomitant]
     Active Substance: FUROSEMIDE
  4. POTASSIUM [Concomitant]
     Active Substance: POTASSIUM
  5. ZETIA [Concomitant]
     Active Substance: EZETIMIBE
  6. ORENCIA [Suspect]
     Active Substance: ABATACEPT
     Indication: RHEUMATOID ARTHRITIS
     Dosage: ?          OTHER FREQUENCY:WEEKLY;?
     Route: 058
     Dates: start: 20190322
  7. LEVOTHYROXIN [Concomitant]
     Active Substance: LEVOTHYROXINE
  8. ASPRIN LOW DOSE [Concomitant]
  9. VITAMIN D3 [Concomitant]
     Active Substance: CHOLECALCIFEROL

REACTIONS (2)
  - Cellulitis [None]
  - Therapy interrupted [None]
